FAERS Safety Report 15877663 (Version 2)
Quarter: 2019Q1

REPORT INFORMATION
  Report Type: Spontaneous
  Country: US (occurrence: US)
  Receive Date: 20190128
  Receipt Date: 20190128
  Transmission Date: 20190417
  Serious: Yes (Other)
  Sender: FDA-Public Use
  Company Number: US-HIKMA PHARMACEUTICALS USA INC.-US-H14001-19-00412

PATIENT
  Age: 6 Year
  Sex: Female

DRUGS (4)
  1. MERCAPTOPURINE. [Suspect]
     Active Substance: MERCAPTOPURINE
     Route: 048
  2. MERCAPTOPURINE. [Suspect]
     Active Substance: MERCAPTOPURINE
     Route: 048
  3. MERCAPTOPURINE. [Suspect]
     Active Substance: MERCAPTOPURINE
     Route: 048
  4. MERCAPTOPURINE. [Suspect]
     Active Substance: MERCAPTOPURINE
     Indication: ACUTE LYMPHOCYTIC LEUKAEMIA
     Route: 048

REACTIONS (7)
  - Hypoglycaemia [Recovered/Resolved]
  - Bilirubin conjugated increased [Unknown]
  - Lactic acidosis [Unknown]
  - Transaminases increased [Unknown]
  - Neutropenia [Recovered/Resolved]
  - Drug level increased [Unknown]
  - Jaundice [Unknown]
